FAERS Safety Report 4667258-5 (Version None)
Quarter: 2005Q2

REPORT INFORMATION
  Report Type: 
  Country: None (occurrence: None)
  Receive Date: 20050520
  Receipt Date: 20040816
  Transmission Date: 20051028
  Serious: Yes (Other)
  Sender: FDA-Public Use
  Company Number: PHEH2004US08953

PATIENT
  Sex: Male

DRUGS (3)
  1. ZOMETA [Suspect]
     Indication: PROSTATE CANCER
     Dosage: 4 MG EVERY 4 WEEKS
     Route: 042
     Dates: start: 20030212, end: 20040513
  2. TAXOTERE [Concomitant]
     Indication: PROSTATE CANCER
     Dosage: 75MG/M2 Q3W
     Dates: start: 20041101
  3. DECADRON [Concomitant]
     Dosage: 8 MG, BID

REACTIONS (1)
  - OSTEONECROSIS [None]
